FAERS Safety Report 5920856-0 (Version None)
Quarter: 2008Q4

REPORT INFORMATION
  Report Type: 
  Country: None (occurrence: None)
  Receive Date: 20081016
  Receipt Date: 20081009
  Transmission Date: 20090506
  Serious: Yes (Hospitalization)
  Sender: FDA-Public Use
  Company Number: BR-AVENTIS-200817150GDDC

PATIENT
  Age: 65 Year
  Sex: Female
  Weight: 50 kg

DRUGS (4)
  1. LANTUS [Suspect]
     Dosage: DOSE: 3-4
     Route: 058
     Dates: start: 20070101, end: 20080601
  2. LANTUS [Suspect]
     Route: 058
     Dates: start: 20080601, end: 20080701
  3. LANTUS [Suspect]
     Dosage: DOSE: LESS THAN 10
     Route: 058
     Dates: start: 20080701
  4. INSULIN LISPRO [Concomitant]
     Dosage: DOSE: 4-5
     Route: 058
     Dates: start: 20070101

REACTIONS (6)
  - CONFUSIONAL STATE [None]
  - DISORIENTATION [None]
  - DIZZINESS [None]
  - HYPERGLYCAEMIA [None]
  - HYPERHIDROSIS [None]
  - HYPOGLYCAEMIA [None]
